FAERS Safety Report 8882529 (Version 1)
Quarter: 2012Q4

REPORT INFORMATION
  Report Type: 
  Country: JP (occurrence: JP)
  Receive Date: 20121102
  Receipt Date: 20121102
  Transmission Date: 20130627
  Serious: Yes (Hospitalization)
  Sender: FDA-Public Use
  Company Number: JP-ELI_LILLY_AND_COMPANY-JP201111004746

PATIENT
  Age: 75 Year
  Sex: Female

DRUGS (2)
  1. FORTEO [Suspect]
     Dosage: UNK
     Route: 058
     Dates: end: 20111112
  2. FORTEO [Suspect]
     Dosage: UNK
     Route: 058
     Dates: start: 20111114

REACTIONS (2)
  - Hospitalisation [Not Recovered/Not Resolved]
  - Expired drug administered [Recovered/Resolved]
